FAERS Safety Report 7467252-5 (Version None)
Quarter: 2011Q2

REPORT INFORMATION
  Report Type: 
  Country: None (occurrence: None)
  Receive Date: 20110509
  Receipt Date: 20101103
  Transmission Date: 20111010
  Serious: No
  Sender: FDA-Public Use
  Company Number: US-ALEXION-A201001419

PATIENT
  Sex: Female

DRUGS (6)
  1. AMOXICILLIN [Suspect]
     Indication: VAGINAL INFLAMMATION
     Dosage: UNK
     Route: 048
     Dates: start: 20101001
  2. HORMONES AND RELATED AGENTS [Suspect]
     Indication: VAGINAL HAEMORRHAGE
     Dosage: UNK
  3. SOLIRIS [Suspect]
     Indication: PAROXYSMAL NOCTURNAL HAEMOGLOBINURIA
     Dosage: UNK
     Route: 042
  4. AMOXICILLIN [Suspect]
     Indication: VAGINAL HAEMORRHAGE
  5. FLAGYL [Suspect]
     Indication: VAGINAL HAEMORRHAGE
  6. FLAGYL [Suspect]
     Indication: VAGINAL INFLAMMATION
     Dosage: UNK
     Route: 048
     Dates: start: 20101001

REACTIONS (3)
  - VAGINAL INFLAMMATION [None]
  - BLOOD LACTATE DEHYDROGENASE INCREASED [None]
  - VAGINAL HAEMORRHAGE [None]
